FAERS Safety Report 16514211 (Version 1)
Quarter: 2019Q3

REPORT INFORMATION
  Report Type: Report from Study
  Country: CA (occurrence: CA)
  Receive Date: 20190702
  Receipt Date: 20190702
  Transmission Date: 20191004
  Serious: Yes (Hospitalization)
  Sender: FDA-Public Use
  Company Number: CA-PFIZER INC-2701890

PATIENT
  Age: 64 Year
  Sex: Female
  Weight: 81.81 kg

DRUGS (2)
  1. METHOTREXATE SODIUM. [Suspect]
     Active Substance: METHOTREXATE SODIUM
     Indication: RHEUMATOID ARTHRITIS
     Dosage: UNK
  2. REMICADE [Suspect]
     Active Substance: INFLIXIMAB
     Indication: RHEUMATOID ARTHRITIS
     Dosage: 300 MG, UNK (1 EVERY 8 WEEKS)
     Route: 042

REACTIONS (4)
  - Thyroid disorder [Unknown]
  - Arthralgia [Unknown]
  - Fibrosis [Unknown]
  - Malaise [Unknown]
